FAERS Safety Report 5972567-3 (Version None)
Quarter: 2008Q4

REPORT INFORMATION
  Report Type: 
  Country: None (occurrence: None)
  Receive Date: 20081201
  Receipt Date: 20081120
  Transmission Date: 20090506
  Serious: Yes (Other)
  Sender: FDA-Public Use
  Company Number: D0059435A

PATIENT
  Age: 76 Year
  Sex: Male

DRUGS (10)
  1. AVODART [Suspect]
     Indication: OBSTRUCTIVE UROPATHY
     Dosage: .5MG PER DAY
     Route: 048
     Dates: start: 20071211
  2. MARCUMAR [Concomitant]
  3. SYMBICORT [Concomitant]
  4. SPIRIVA [Concomitant]
  5. PRAVASTATIN [Concomitant]
  6. BISOPROLOL FUMARATE [Concomitant]
  7. PANTOZOL [Concomitant]
  8. TERAZOSIN HCL [Concomitant]
  9. EUNERPAN [Concomitant]
  10. METOCLOPRAMIDE [Concomitant]

REACTIONS (2)
  - CEREBROVASCULAR ACCIDENT [None]
  - DRY MOUTH [None]
